FAERS Safety Report 20153510 (Version 1)
Quarter: 2021Q4

REPORT INFORMATION
  Report Type: Spontaneous
  Country: US (occurrence: US)
  Receive Date: 20211206
  Receipt Date: 20211206
  Transmission Date: 20220303
  Serious: No
  Sender: FDA-Public Use
  Company Number: US-SUNOVION-2021SUN004476

PATIENT
  Sex: Female
  Weight: 72.562 kg

DRUGS (3)
  1. LATUDA [Suspect]
     Active Substance: LURASIDONE HYDROCHLORIDE
     Indication: Bipolar disorder
     Dosage: UNK( LOWEST DOSE)
     Route: 048
     Dates: start: 2020
  2. LATUDA [Suspect]
     Active Substance: LURASIDONE HYDROCHLORIDE
     Dosage: UNK(HIGHEST DOSE)
     Route: 048
     Dates: end: 202011
  3. DEPAKOTE [Suspect]
     Active Substance: DIVALPROEX SODIUM
     Dosage: 500 MG
     Route: 065

REACTIONS (3)
  - Alopecia [Not Recovered/Not Resolved]
  - Malaise [Unknown]
  - Weight increased [Unknown]
